FAERS Safety Report 9929396 (Version 2)
Quarter: 2014Q1

REPORT INFORMATION
  Report Type: Other
  Country: TR (occurrence: TR)
  Receive Date: 20140227
  Receipt Date: 20140227
  Transmission Date: 20141002
  Serious: Yes (Hospitalization)
  Sender: FDA-Public Use
  Company Number: TR-BRISTOL-MYERS SQUIBB COMPANY-20135463

PATIENT
  Age: 67 Year
  Sex: Male

DRUGS (2)
  1. WARFARIN SODIUM [Suspect]
     Indication: MITRAL VALVE REPLACEMENT
  2. WARFARIN SODIUM [Suspect]
     Indication: ATRIAL FIBRILLATION

REACTIONS (6)
  - Intestinal haematoma [Recovered/Resolved]
  - Upper gastrointestinal haemorrhage [Recovered/Resolved]
  - Overdose [Unknown]
  - Blood urea increased [Unknown]
  - Blood creatinine increased [Unknown]
  - Hypotension [Unknown]
